FAERS Safety Report 7832247-6 (Version None)
Quarter: 2011Q4

REPORT INFORMATION
  Report Type: 
  Country: None (occurrence: None)
  Receive Date: 20111022
  Receipt Date: 20111006
  Transmission Date: 20120403
  Serious: Yes (Other)
  Sender: FDA-Public Use
  Company Number: US-BAYER-2011-026054

PATIENT
  Age: 27 Year
  Sex: Female
  Weight: 149.66 kg

DRUGS (12)
  1. PROTONIX [Concomitant]
     Indication: GASTROOESOPHAGEAL REFLUX DISEASE
     Dosage: 40 MG, ONCE
     Route: 048
  2. ACETAMINOPHEN AND HYDROCODONE BITARTRATE [Concomitant]
     Indication: BACK PAIN
     Dosage: UNK UNK, Q6WK
  3. YAZ [Suspect]
     Indication: PREMENSTRUAL SYNDROME
  4. YAZ [Suspect]
     Indication: POLYCYSTIC OVARIES
  5. ACETAMINOPHEN AND HYDROCODONE BITARTRATE [Concomitant]
     Indication: ARTHRALGIA
  6. YAZ [Suspect]
     Indication: ACNE
     Dosage: UNK
     Route: 048
     Dates: start: 20080822, end: 20090427
  7. ROPINIROLE [Concomitant]
     Indication: PARKINSON'S DISEASE
     Dosage: 0.25 MG, ONCE
  8. PROMETHAZINE [Concomitant]
     Indication: MULTIPLE ALLERGIES
     Dosage: 25 MG, HS
  9. ETODOLAC [Concomitant]
     Dosage: 400 MG, ONCE
     Route: 048
  10. HYDROCHLOROTHIAZIDE [Concomitant]
  11. XANAX [Concomitant]
     Indication: ANXIETY
  12. CYCLOBENZAPRINE [Concomitant]
     Indication: MUSCLE SPASMS
     Dosage: 5 MG, TID

REACTIONS (4)
  - PANIC REACTION [None]
  - MENTAL DISORDER [None]
  - ANXIETY [None]
  - PULMONARY EMBOLISM [None]
